FAERS Safety Report 4833535-8 (Version None)
Quarter: 2005Q4

REPORT INFORMATION
  Report Type: 
  Country: None (occurrence: None)
  Receive Date: 20051117
  Receipt Date: 20051104
  Transmission Date: 20060501
  Serious: Yes (Hospitalization)
  Sender: FDA-Public Use
  Company Number: 2005-01725

PATIENT
  Age: 67 Year
  Sex: Male

DRUGS (7)
  1. VELCADE [Suspect]
     Indication: MULTIPLE MYELOMA
     Dosage: 2.50 MG,  INTRAVENOUS
     Route: 042
     Dates: start: 20050520, end: 20050725
  2. CLOPIDOGREL (CLOPIDOGREL) [Concomitant]
  3. TROPISETRON (TROPISETRON) [Concomitant]
  4. ATENOLOL [Concomitant]
  5. DEXAMETHASONE [Concomitant]
  6. NORMISON (TEMAZEPAM) [Concomitant]
  7. TEMAZEPAM [Concomitant]

REACTIONS (5)
  - AUTONOMIC NEUROPATHY [None]
  - DEHYDRATION [None]
  - NEUROPATHY PERIPHERAL [None]
  - ORTHOSTATIC HYPOTENSION [None]
  - THERAPY NON-RESPONDER [None]
